FAERS Safety Report 4844720-3 (Version None)
Quarter: 2005Q4

REPORT INFORMATION
  Report Type: 
  Country: None (occurrence: None)
  Receive Date: 20051129
  Receipt Date: 20051115
  Transmission Date: 20060501
  Serious: Yes (Death)
  Sender: FDA-Public Use
  Company Number: A001-OCT-3901

PATIENT
  Sex: Female

DRUGS (1)
  1. ARICEPT [Suspect]
     Indication: DEMENTIA ALZHEIMER'S TYPE
     Dosage: 1 IN 1 D, ORAL
     Route: 048
     Dates: start: 20031015, end: 20040104

REACTIONS (3)
  - ARTERIOSCLEROSIS [None]
  - HAEMORRHAGE INTRACRANIAL [None]
  - HYPERTENSION [None]
